FAERS Safety Report 5403607-8 (Version None)
Quarter: 2007Q3

REPORT INFORMATION
  Report Type: 
  Country: None (occurrence: None)
  Receive Date: 20070802
  Receipt Date: 20070719
  Transmission Date: 20080115
  Serious: Yes (Hospitalization)
  Sender: FDA-Public Use
  Company Number: PHRM2007FR01881

PATIENT
  Age: 46 Year
  Sex: Male

DRUGS (2)
  1. LEPONEX [Suspect]
     Dosage: 250 MG/DAY
     Route: 048
     Dates: start: 20070315, end: 20070420
  2. ATARAX /POR/ [Concomitant]
     Indication: SCHIZOPHRENIA
     Route: 048

REACTIONS (19)
  - ABDOMINAL PAIN LOWER [None]
  - ALANINE AMINOTRANSFERASE INCREASED [None]
  - ANOREXIA [None]
  - ASPARTATE AMINOTRANSFERASE INCREASED [None]
  - BLOOD LACTATE DEHYDROGENASE INCREASED [None]
  - C-REACTIVE PROTEIN INCREASED [None]
  - CONSTIPATION [None]
  - DIARRHOEA [None]
  - DYSPHAGIA [None]
  - EOSINOPHIL COUNT INCREASED [None]
  - HEPATITIS [None]
  - INFLUENZA LIKE ILLNESS [None]
  - LEFT VENTRICULAR HYPERTROPHY [None]
  - MYALGIA [None]
  - NASAL DISORDER [None]
  - RALES [None]
  - RED BLOOD CELL SEDIMENTATION RATE INCREASED [None]
  - SINUS TACHYCARDIA [None]
  - WHITE BLOOD CELL COUNT INCREASED [None]
